FAERS Safety Report 13020018 (Version 2)
Quarter: 2017Q4

REPORT INFORMATION
  Report Type: Spontaneous
  Country: US (occurrence: US)
  Receive Date: 20161212
  Receipt Date: 20171211
  Transmission Date: 20180320
  Serious: No
  Sender: FDA-Public Use
  Company Number: US-ROCHE-1781047

PATIENT
  Sex: Female

DRUGS (2)
  1. LUCENTIS [Suspect]
     Active Substance: RANIBIZUMAB
     Indication: RETINAL VEIN OCCLUSION
     Dosage: SOL 0.5MG 0.05ML
     Route: 065
     Dates: start: 20160122
  2. LEVOTHYROXIN [Concomitant]
     Active Substance: LEVOTHYROXINE
     Route: 065

REACTIONS (3)
  - Injection site erythema [Recovered/Resolved]
  - Ocular hyperaemia [Not Recovered/Not Resolved]
  - Injection site pain [Recovered/Resolved]
